FAERS Safety Report 7602993-8 (Version None)
Quarter: 2011Q3

REPORT INFORMATION
  Report Type: 
  Country: None (occurrence: None)
  Receive Date: 20110712
  Receipt Date: 20110610
  Transmission Date: 20111222
  Serious: No
  Sender: FDA-Public Use
  Company Number: A0932483A

PATIENT
  Sex: Male

DRUGS (2)
  1. JALYN [Suspect]
     Route: 065
  2. TAMSULOSIN HCL [Concomitant]

REACTIONS (2)
  - DRUG INEFFECTIVE [None]
  - URINE FLOW DECREASED [None]
